FAERS Safety Report 13924284 (Version 1)
Quarter: 2017Q3

REPORT INFORMATION
  Report Type: Spontaneous
  Country: FR (occurrence: FR)
  Receive Date: 20170831
  Receipt Date: 20170831
  Transmission Date: 20171127
  Serious: Yes (Hospitalization)
  Sender: FDA-Public Use
  Company Number: FR-ROCHE-1982322

PATIENT
  Age: 50 Year
  Sex: Male

DRUGS (15)
  1. FUROSEMIDE. [Suspect]
     Active Substance: FUROSEMIDE
     Indication: PRODUCT USED FOR UNKNOWN INDICATION
     Route: 048
     Dates: start: 20170509, end: 20170526
  2. VITAMINE B1 B6 BAYER [Suspect]
     Active Substance: PYRIDOXINE HYDROCHLORIDE\THIAMINE HYDROCHLORIDE
     Indication: PRODUCT USED FOR UNKNOWN INDICATION
     Route: 048
     Dates: start: 20170509, end: 20170626
  3. EXACYL [Suspect]
     Active Substance: TRANEXAMIC ACID
     Indication: PRODUCT USED FOR UNKNOWN INDICATION
     Route: 065
     Dates: start: 20170523, end: 20170523
  4. SPIRONOLACTONE. [Suspect]
     Active Substance: SPIRONOLACTONE
     Indication: PRODUCT USED FOR UNKNOWN INDICATION
     Route: 048
     Dates: start: 20170509, end: 20170526
  5. PROPRANOLOL [Suspect]
     Active Substance: PROPRANOLOL HYDROCHLORIDE
     Indication: HYPERTENSION
  6. NORMACOL [Suspect]
     Active Substance: HERBALS\KARAYA GUM
     Indication: PRODUCT USED FOR UNKNOWN INDICATION
     Route: 065
     Dates: start: 20170523, end: 20170524
  7. SANDOSTATIN [Concomitant]
     Active Substance: OCTREOTIDE ACETATE
  8. PANTOPRAZOLE [Suspect]
     Active Substance: PANTOPRAZOLE
     Indication: PRODUCT USED FOR UNKNOWN INDICATION
     Route: 048
     Dates: start: 20170509, end: 20170626
  9. ESOMEPRAZOLE [Suspect]
     Active Substance: ESOMEPRAZOLE
     Indication: PRODUCT USED FOR UNKNOWN INDICATION
     Route: 048
     Dates: start: 20170523, end: 20170526
  10. PROTON PUMP INHIBITORS [Concomitant]
     Active Substance: UNSPECIFIED INGREDIENT
  11. PROPRANOLOL [Suspect]
     Active Substance: PROPRANOLOL HYDROCHLORIDE
     Indication: TACHYCARDIA
     Route: 048
  12. ROCEPHINE [Suspect]
     Active Substance: CEFTRIAXONE SODIUM
     Indication: PRODUCT USED FOR UNKNOWN INDICATION
     Route: 065
     Dates: start: 20170523, end: 20170526
  13. DUPHALAC (FRANCE) [Suspect]
     Active Substance: LACTULOSE
     Indication: PRODUCT USED FOR UNKNOWN INDICATION
     Route: 048
     Dates: start: 20170525, end: 20170626
  14. SANDOSTATINE [Suspect]
     Active Substance: OCTREOTIDE ACETATE
     Indication: PRODUCT USED FOR UNKNOWN INDICATION
     Route: 065
     Dates: start: 20170523, end: 20170526
  15. NICOBION [Suspect]
     Active Substance: NIACINAMIDE
     Indication: PRODUCT USED FOR UNKNOWN INDICATION
     Route: 065
     Dates: start: 20170509, end: 20170626

REACTIONS (2)
  - Dermatitis bullous [Recovering/Resolving]
  - Toxic skin eruption [Recovering/Resolving]

NARRATIVE: CASE EVENT DATE: 20170608
